FAERS Safety Report 18767145 (Version 2)
Quarter: 2021Q1

REPORT INFORMATION
  Report Type: Report from Study
  Country: JP (occurrence: JP)
  Receive Date: 20210121
  Receipt Date: 20210125
  Transmission Date: 20210419
  Serious: No
  Sender: FDA-Public Use
  Company Number: JP-BRISTOL-MYERS SQUIBB COMPANY-BMS-2021-005128

PATIENT
  Sex: Male
  Weight: 59 kg

DRUGS (1)
  1. NIVOLUMAB [Suspect]
     Active Substance: NIVOLUMAB
     Indication: SKIN ANGIOSARCOMA
     Dosage: 480 MILLIGRAM
     Route: 041
     Dates: start: 20200918

REACTIONS (1)
  - No adverse event [Unknown]
